FAERS Safety Report 9385180 (Version 1)
Quarter: 2013Q3

REPORT INFORMATION
  Report Type: Spontaneous
  Country: US (occurrence: US)
  Receive Date: 20130705
  Receipt Date: 20130705
  Transmission Date: 20140515
  Serious: No
  Sender: FDA-Public Use
  Company Number: US-ASTRAZENECA-2013SE42550

PATIENT
  Age: 64 Year
  Sex: Female
  Weight: 97.5 kg

DRUGS (7)
  1. ARIMIDEX [Suspect]
     Indication: BREAST CANCER
     Route: 048
  2. XANAX [Concomitant]
  3. EFFEXOR [Concomitant]
  4. VITAMIN D [Concomitant]
  5. BIOTIN [Concomitant]
  6. CENTRUM SILVER [Concomitant]
  7. AROMASIN [Concomitant]

REACTIONS (6)
  - Weight increased [Unknown]
  - Onychoclasis [Unknown]
  - Pain in extremity [Unknown]
  - Bone pain [Unknown]
  - Arthralgia [Unknown]
  - Alopecia [Unknown]
